FAERS Safety Report 16796666 (Version 3)
Quarter: 2020Q3

REPORT INFORMATION
  Report Type: Spontaneous
  Country: RO (occurrence: RO)
  Receive Date: 20190911
  Receipt Date: 20200831
  Transmission Date: 20201102
  Serious: Yes (Other)
  Sender: FDA-Public Use
  Company Number: RO-ALLERGAN-1936942US

PATIENT
  Sex: Male

DRUGS (5)
  1. AZATHIOPRINE. [Suspect]
     Active Substance: AZATHIOPRINE
     Dosage: 50 MG, QD
     Route: 065
  2. PREDNISON [Suspect]
     Active Substance: PREDNISONE
     Dosage: 40 MG, QD, (3 WEEKS, THEN TAPPERING DISES)
     Route: 065
  3. MESALAZINE UNK [Suspect]
     Active Substance: MESALAMINE
     Indication: COLITIS ULCERATIVE
     Dosage: 2 G, QD
     Route: 065
  4. PREDNISON [Suspect]
     Active Substance: PREDNISONE
     Indication: COLITIS ULCERATIVE
     Dosage: 10 MG, QD
     Route: 065
  5. AZATHIOPRINE. [Suspect]
     Active Substance: AZATHIOPRINE
     Indication: COLITIS ULCERATIVE
     Dosage: 150 MG/ZI
     Route: 065

REACTIONS (8)
  - Rhabdomyolysis [Recovered/Resolved]
  - Erythema nodosum [Recovered/Resolved]
  - Folliculitis [Recovered/Resolved]
  - Muscular weakness [Unknown]
  - Hepatocellular injury [Unknown]
  - Pyrexia [Unknown]
  - Colitis ulcerative [Unknown]
  - Transaminases increased [Recovered/Resolved]
